FAERS Safety Report 4362286-1 (Version None)
Quarter: 2004Q2

REPORT INFORMATION
  Report Type: 
  Country: None (occurrence: None)
  Receive Date: 20040520
  Receipt Date: 20040520
  Transmission Date: 20050107
  Serious: Yes (Hospitalization, Other)
  Sender: FDA-Public Use
  Company Number: None

PATIENT
  Sex: Male
  Weight: 55.3388 kg

DRUGS (3)
  1. DIGOXIN [Suspect]
     Dosage: 0.125 MG QD
  2. DILTIAZEM [Suspect]
     Dosage: 120 MG SA QD
  3. METOPROLOL SA [Suspect]

REACTIONS (2)
  - NODAL RHYTHM [None]
  - SYNCOPE [None]
